FAERS Safety Report 9202161 (Version 1)
Quarter: 2013Q1

REPORT INFORMATION
  Report Type: Spontaneous
  Country: US (occurrence: None)
  Receive Date: 20130326
  Receipt Date: 20130326
  Transmission Date: 20140127
  Serious: Yes (Hospitalization, Other)
  Sender: FDA-Public Use
  Company Number: AUR-APL-2013-02381

PATIENT
  Age: 84 Year
  Sex: Female
  Weight: 63.49 kg

DRUGS (4)
  1. LISINOPRIL (LISINOPRIL) [Suspect]
     Indication: HYPERTENSION
  2. LIPITOR [Suspect]
  3. PLAVIX (CLOPIDOGREL) [Concomitant]
  4. ASPIRIN (ACETYLSALICYLIC ACID) [Concomitant]

REACTIONS (16)
  - Dementia [None]
  - Memory impairment [None]
  - Drug administration error [None]
  - Hypertension [None]
  - Muscle spasms [None]
  - Middle insomnia [None]
  - Headache [None]
  - Visual impairment [None]
  - Carotid artery stenosis [None]
  - Hypoaesthesia [None]
  - Hypoaesthesia [None]
  - Dysarthria [None]
  - Dehydration [None]
  - Transient ischaemic attack [None]
  - Angiopathy [None]
  - Vomiting [None]
